FAERS Safety Report 9990953 (Version 1)
Quarter: 2014Q1

REPORT INFORMATION
  Report Type: Report from Study
  Country: US (occurrence: US)
  Receive Date: 20140310
  Receipt Date: 20140310
  Transmission Date: 20141002
  Serious: No
  Sender: FDA-Public Use
  Company Number: US-ABBVIE-13P-163-1132779-00

PATIENT
  Age: 31 Year
  Sex: Female

DRUGS (2)
  1. HUMIRA [Suspect]
     Indication: PSORIASIS
     Dates: start: 201206
  2. HUMIRA [Suspect]
     Dates: start: 20130809

REACTIONS (3)
  - Injection site pain [Recovered/Resolved]
  - Diabetes mellitus [Recovered/Resolved]
  - Injection site haemorrhage [Recovered/Resolved]
